FAERS Safety Report 14753911 (Version 1)
Quarter: 2018Q2

REPORT INFORMATION
  Report Type: Spontaneous
  Country: US (occurrence: US)
  Receive Date: 20180412
  Receipt Date: 20180412
  Transmission Date: 20180711
  Serious: No
  Sender: FDA-Public Use
  Company Number: US-SEBELA IRELAND LIMITED-2017SEB00485

PATIENT

DRUGS (9)
  1. REMICADE [Suspect]
     Active Substance: INFLIXIMAB
  2. METHOTREXATE. [Suspect]
     Active Substance: METHOTREXATE
  3. ENTOCORT [Suspect]
     Active Substance: BUDESONIDE
  4. COLESTYRAMINE [Suspect]
     Active Substance: CHOLESTYRAMINE
  5. COLESTIPOL [Suspect]
     Active Substance: COLESTIPOL
  6. ENTYVIO [Concomitant]
     Active Substance: VEDOLIZUMAB
     Dosage: UNK
     Dates: start: 2015
  7. PREDNISONE. [Suspect]
     Active Substance: PREDNISONE
  8. HUMIRA [Suspect]
     Active Substance: ADALIMUMAB
     Route: 058
  9. IMURAN [Suspect]
     Active Substance: AZATHIOPRINE

REACTIONS (2)
  - Gastrointestinal disorder [Unknown]
  - Drug ineffective [Unknown]
